FAERS Safety Report 24200274 (Version 1)
Quarter: 2024Q3

REPORT INFORMATION
  Report Type: Spontaneous
  Country: US (occurrence: None)
  Receive Date: 20240809
  Receipt Date: 20240809
  Transmission Date: 20241017
  Serious: No
  Sender: Public
  Company Number: None

PATIENT
  Age: 69 Year
  Sex: Male
  Weight: 65.25 kg

DRUGS (10)
  1. REVLIMID [Suspect]
     Active Substance: LENALIDOMIDE
     Indication: Plasma cell myeloma
     Dosage: FREQUENCY : DAILY;?
     Route: 048
     Dates: start: 20240415, end: 20240808
  2. Medrol (Pak) 4 mg tablets in a dose pack [Concomitant]
  3. GABAPENTIN [Concomitant]
     Active Substance: GABAPENTIN
  4. potassium chloride ER 20 mEq tablet,extended release [Concomitant]
  5. hydrocodone 5 mg-acetaminophen 325 mg tablet [Concomitant]
  6. DEXAMETHASONE [Concomitant]
     Active Substance: DEXAMETHASONE
  7. ACYCLOVIR [Concomitant]
     Active Substance: ACYCLOVIR
  8. Eliquis 2.5 mg tablet [Concomitant]
  9. ondansetron HCl 8 mg tablet [Concomitant]
  10. tramadol 50 mg tablet [Concomitant]

REACTIONS (1)
  - Rash [None]

NARRATIVE: CASE EVENT DATE: 20240808
